FAERS Safety Report 9057336 (Version 1)
Quarter: 2013Q1

REPORT INFORMATION
  Report Type: Spontaneous
  Country: US (occurrence: US)
  Receive Date: 20130204
  Receipt Date: 20130204
  Transmission Date: 20140127
  Serious: No
  Sender: FDA-Public Use
  Company Number: US-AMGEN-USASP2012028013

PATIENT
  Age: 29 Year
  Sex: Female
  Weight: 61.22 kg

DRUGS (5)
  1. ENBREL [Suspect]
     Indication: PSORIATIC ARTHROPATHY
     Dosage: 50 MG, QWK
     Route: 058
     Dates: start: 20070527
  2. MULTIVITAMIN                       /07504101/ [Concomitant]
     Dosage: UNK
     Dates: start: 20120101
  3. FISH OIL [Concomitant]
     Dosage: UNK
     Dates: start: 20120201
  4. ACIDOPHILIS [Concomitant]
     Dosage: UNK
  5. VACCINES [Concomitant]
     Indication: INFLUENZA
     Dosage: UNK

REACTIONS (1)
  - Pharyngitis streptococcal [Unknown]
